FAERS Safety Report 9807445 (Version 5)
Quarter: 2014Q3

REPORT INFORMATION
  Report Type: Spontaneous
  Country: US (occurrence: US)
  Receive Date: 20140110
  Receipt Date: 20140917
  Transmission Date: 20150326
  Serious: Yes (Other)
  Sender: FDA-Public Use
  Company Number: US-PFIZER INC-2014005991

PATIENT
  Age: 38 Year
  Sex: Male
  Weight: 102.4 kg

DRUGS (2)
  1. SUBUTEX [Concomitant]
     Active Substance: BUPRENORPHINE HYDROCHLORIDE
     Indication: PAIN
     Dosage: 8 MG, 3X/DAY
     Route: 060
  2. LYRICA [Suspect]
     Active Substance: PREGABALIN
     Indication: FIBROMYALGIA
     Dosage: 300 MG, 3X/DAY
     Route: 048
     Dates: start: 2008, end: 2014

REACTIONS (7)
  - Therapeutic response changed [Unknown]
  - Malaise [Unknown]
  - Discomfort [Unknown]
  - Compression fracture [Unknown]
  - Nervousness [Unknown]
  - Lethargy [Unknown]
  - Pre-existing condition improved [Unknown]

NARRATIVE: CASE EVENT DATE: 2012
